FAERS Safety Report 23146343 (Version 1)
Quarter: 2023Q4

REPORT INFORMATION
  Report Type: Spontaneous
  Country: IT (occurrence: IT)
  Receive Date: 20231104
  Receipt Date: 20231104
  Transmission Date: 20240109
  Serious: Yes (Other)
  Sender: FDA-Public Use
  Company Number: IT-EPICPHARMA-IT-2023EPCLIT01624

PATIENT
  Age: 54 Day
  Sex: Male
  Weight: 3.8 kg

DRUGS (4)
  1. AMIODARONE HYDROCHLORIDE [Suspect]
     Active Substance: AMIODARONE HYDROCHLORIDE
     Indication: Supraventricular tachycardia
     Route: 065
  2. DIGOXIN [Suspect]
     Active Substance: DIGOXIN
     Indication: Supraventricular tachycardia
     Dosage: 5 MCG/KG/DAY
     Route: 065
  3. DIGOXIN [Suspect]
     Active Substance: DIGOXIN
     Dosage: 500 MCG
     Route: 048
  4. PROPRANOLOL [Concomitant]
     Active Substance: PROPRANOLOL HYDROCHLORIDE
     Indication: Supraventricular tachycardia
     Route: 065

REACTIONS (6)
  - Bradycardia [Recovered/Resolved]
  - Hyperkalaemia [Recovered/Resolved]
  - Toxicity to various agents [Recovered/Resolved]
  - Hypermagnesaemia [Recovered/Resolved]
  - Labelled drug-drug interaction medication error [Unknown]
  - Product use issue [Unknown]
